FAERS Safety Report 6693240-2 (Version None)
Quarter: 2010Q2

REPORT INFORMATION
  Report Type: 
  Country: None (occurrence: None)
  Receive Date: 20100421
  Receipt Date: 20100421
  Transmission Date: 20101027
  Serious: Yes (Life-Threatening, Hospitalization, Disabling, Other)
  Sender: FDA-Public Use
  Company Number: None

PATIENT
  Age: 57 Year
  Sex: Female
  Weight: 74.8435 kg

DRUGS (2)
  1. PROTONIX [Suspect]
     Indication: BLOOD PRESSURE MANAGEMENT
     Dosage: 40 MG 1/DAY PO
     Route: 048
     Dates: start: 20060101, end: 20090101
  2. PROTONIX [Suspect]
     Indication: GASTROOESOPHAGEAL REFLUX DISEASE
     Dosage: 40 MG 1/DAY PO
     Route: 048
     Dates: start: 20060101, end: 20090101

REACTIONS (6)
  - BREAST PAIN [None]
  - CHEST PAIN [None]
  - DYSPNOEA [None]
  - NIPPLE PAIN [None]
  - PRESYNCOPE [None]
  - UNEVALUABLE EVENT [None]
